FAERS Safety Report 13033798 (Version 3)
Quarter: 2017Q1

REPORT INFORMATION
  Report Type: Spontaneous
  Country: US (occurrence: US)
  Receive Date: 20161216
  Receipt Date: 20170317
  Transmission Date: 20170428
  Serious: Yes (Death, Other)
  Sender: FDA-Public Use
  Company Number: US-009507513-1612USA004019

PATIENT
  Age: 64 Year
  Sex: Male
  Weight: 87.08 kg

DRUGS (20)
  1. TERAZOSIN [Concomitant]
     Active Substance: TERAZOSIN\TERAZOSIN HYDROCHLORIDE
     Dosage: 1 CAPSULE, ONCE A DAY (30, 30 CAPSULE, REFILLS:4)
     Route: 048
  2. ZEPATIER [Suspect]
     Active Substance: ELBASVIR\GRAZOPREVIR
     Indication: CHRONIC HEPATITIS C
     Dosage: UNK UNK, QD
     Route: 048
     Dates: start: 20160603, end: 20160826
  3. FLUTICASONE PROPIONATE. [Concomitant]
     Active Substance: FLUTICASONE PROPIONATE
     Dosage: 1 SPRAY IN EACH NOSTRIL, ONCE A DAY (28,1 UNSPECIFIED, REFILLS:2). STRENGTH: 50 MCG/ACT
     Route: 045
  4. AMLODIPINE BESYLATE. [Concomitant]
     Active Substance: AMLODIPINE BESYLATE
     Dosage: 1 TABLET, ONCE A DAY(30, 30 TABLET, REFILLS:4)
     Route: 048
  5. COLCHICINE. [Concomitant]
     Active Substance: COLCHICINE
     Dosage: 1 TABLET, ONCE A DAY
     Route: 048
  6. FUROSEMIDE. [Concomitant]
     Active Substance: FUROSEMIDE
     Dosage: 1 TABLET, 2 TIMES A DAY (30, 60 TABLET, REFILLS:0)
     Route: 048
  7. ULORIC [Concomitant]
     Active Substance: FEBUXOSTAT
     Dosage: 1 TABLET, ONCE A DAY (30 DAYS, 30, REFILLS:5)
     Route: 048
  8. LATANOPROST. [Concomitant]
     Active Substance: LATANOPROST
     Dosage: 1 DROP INTO AFFECTED EYE IN THE EVENING OPHTHALMIC ONCE A DAY
     Route: 047
  9. ACETAMINOPHEN. [Concomitant]
     Active Substance: ACETAMINOPHEN
     Dosage: 1 TABLET AS NEEDED (EVERY 6 HRS, 30 DAYS, 120 TABLET)
     Route: 048
  10. DELSYM [Concomitant]
     Active Substance: DEXTROMETHORPHAN
     Dosage: 5 ML (1 TEASPOONFUL) AS NEEDED, EVERY 12 HRS (10 DAYS, 120, REFILLS:0). STRENGTH: 30MG/5ML
     Route: 048
  11. CALCITRIOL. [Concomitant]
     Active Substance: CALCITRIOL
     Dosage: 1 CAPSULE, ONCE A DAY (30 DAYS, 30, REFILLS: 6)
     Route: 048
  12. FLUOXETINE [Concomitant]
     Active Substance: FLUOXETINE HYDROCHLORIDE
     Dosage: 1 CAPSULE, IN THE MORNING ONCE A DAY (30, 30 CAPSULE, REFILLS:5)
     Route: 048
  13. MUCINEX [Concomitant]
     Active Substance: GUAIFENESIN
     Dosage: 1 TABLET, AS NEEDED EVERY 12 HRS (10 DAYS, 20 TABLETS, REFILLS: 0)
     Route: 048
  14. TRAMADOL HYDROCHLORIDE. [Concomitant]
     Active Substance: TRAMADOL HYDROCHLORIDE
     Dosage: 50 MG AS DIRECTED, BID PRN (28 DAYS, 40, REFILLS:0)
     Route: 048
  15. AMITRIPTYLINE HYDROCHLORIDE. [Concomitant]
     Active Substance: AMITRIPTYLINE HYDROCHLORIDE
     Dosage: 1 TABLET, ONCE A DAY(30 DAYS, 30 TALBET, REFILLS:5)
     Route: 048
  16. OMEPRAZOLE. [Concomitant]
     Active Substance: OMEPRAZOLE
     Dosage: 1 CAPSULE, ONCE A DAY (30, 30 CAPSULE, REFILLS:5 AND 6)
     Route: 048
  17. CARVEDILOL. [Concomitant]
     Active Substance: CARVEDILOL
     Dosage: 25 MG, 2 TIMES A DAY (30, 60 TABLET, REFILLS: 4)
     Route: 048
  18. ASPIRIN. [Concomitant]
     Active Substance: ASPIRIN
     Dosage: 1 TABLET, ONCE A DAY(30 DAYS, 30 TABLET, REFILLS:6)
     Route: 048
  19. BENAZEPRIL HYDROCHLORIDE. [Concomitant]
     Active Substance: BENAZEPRIL HYDROCHLORIDE
     Dosage: 1 TABLET, ONEC A DAY (30, 30 TABLET, REFILLS: 4)
     Route: 048
  20. PROPECIA [Concomitant]
     Active Substance: FINASTERIDE
     Dosage: 1 TABLET, ONCE A DAY (30, 30 ABLET, REFILLS:4)
     Route: 048

REACTIONS (1)
  - Hypertensive heart disease [Fatal]

NARRATIVE: CASE EVENT DATE: 20160927
